FAERS Safety Report 8844785 (Version 1)
Quarter: 2012Q4

REPORT INFORMATION
  Report Type: Spontaneous
  Country: US (occurrence: None)
  Receive Date: 20120928
  Receipt Date: 20120928
  Transmission Date: 20130627
  Serious: Yes (Other)
  Sender: FDA-Public Use
  Company Number: RB-40825-2012

PATIENT

DRUGS (1)
  1. SUBOXONE [Suspect]
     Indication: ACCIDENTAL EXPOSURE TO PRODUCT

REACTIONS (1)
  - Accidental exposure to product by child [None]
